FAERS Safety Report 15607686 (Version 5)
Quarter: 2019Q1

REPORT INFORMATION
  Report Type: Report from Study
  Country: None (occurrence: US)
  Receive Date: 20181112
  Receipt Date: 20190118
  Transmission Date: 20190417
  Serious: Yes (Hospitalization, Other)
  Sender: FDA-Public Use
  Company Number: US-ABBVIE-18K-163-2509398-00

PATIENT
  Age: 74 Year
  Sex: Male
  Weight: 72.64 kg

DRUGS (2)
  1. HUMIRA [Suspect]
     Active Substance: ADALIMUMAB
     Indication: CROHN^S DISEASE
     Route: 058
     Dates: start: 2008, end: 201810
  2. HUMIRA [Suspect]
     Active Substance: ADALIMUMAB
     Route: 058
     Dates: start: 201810

REACTIONS (12)
  - Colostomy [Unknown]
  - Hospitalisation [Recovering/Resolving]
  - Decreased appetite [Recovering/Resolving]
  - Rectal haemorrhage [Recovering/Resolving]
  - Hospitalisation [Recovering/Resolving]
  - Faeces discoloured [Recovering/Resolving]
  - Bladder obstruction [Recovering/Resolving]
  - Fatigue [Recovering/Resolving]
  - Post procedural haemorrhage [Recovered/Resolved]
  - Suture rupture [Recovered/Resolved]
  - Urinary retention [Recovering/Resolving]
  - Diarrhoea haemorrhagic [Not Recovered/Not Resolved]

NARRATIVE: CASE EVENT DATE: 201809
